FAERS Safety Report 10098677 (Version 1)
Quarter: 2014Q2

REPORT INFORMATION
  Report Type: Spontaneous
  Country: GB (occurrence: None)
  Receive Date: 20140421
  Receipt Date: 20140421
  Transmission Date: 20141212
  Serious: Yes (Other)
  Sender: FDA-Public Use
  Company Number: 2014P1003178

PATIENT
  Sex: 0

DRUGS (1)
  1. OLANZAPINE [Suspect]
     Route: 064

REACTIONS (3)
  - Hypoglycaemia neonatal [None]
  - Hyperinsulinism [None]
  - Maternal drugs affecting foetus [None]
